FAERS Safety Report 4701172-1 (Version None)
Quarter: 2005Q2

REPORT INFORMATION
  Report Type: 
  Country: None (occurrence: None)
  Receive Date: 20050628
  Receipt Date: 20050624
  Transmission Date: 20051028
  Serious: Yes (Other)
  Sender: FDA-Public Use
  Company Number: DE-GLAXOSMITHKLINE-D0046923A

PATIENT
  Age: 23 Year
  Sex: Female

DRUGS (1)
  1. LAMICTAL [Suspect]
     Route: 048
     Dates: start: 20000101

REACTIONS (2)
  - ASTHMA [None]
  - TREMOR [None]
